FAERS Safety Report 13831873 (Version 1)
Quarter: 2017Q3

REPORT INFORMATION
  Report Type: Spontaneous
  Country: US (occurrence: US)
  Receive Date: 20170803
  Receipt Date: 20170803
  Transmission Date: 20171127
  Serious: No
  Sender: FDA-Public Use
  Company Number: None

PATIENT
  Age: 83 Year
  Sex: Male

DRUGS (1)
  1. REVLIMID [Suspect]
     Active Substance: LENALIDOMIDE
     Indication: PLASMA CELL MYELOMA
     Route: 048
     Dates: start: 20150312, end: 20150316

REACTIONS (4)
  - Rash [None]
  - Drug intolerance [None]
  - Therapy cessation [None]
  - Pruritus [None]

NARRATIVE: CASE EVENT DATE: 20150316
